FAERS Safety Report 13702525 (Version 1)
Quarter: 2017Q2

REPORT INFORMATION
  Report Type: Report from Study
  Country: GB (occurrence: GB)
  Receive Date: 20170629
  Receipt Date: 20170629
  Transmission Date: 20170830
  Serious: Yes (Death)
  Sender: FDA-Public Use
  Company Number: GB-AMGEN-GBRNI2017097768

PATIENT
  Age: 86 Year
  Sex: Female

DRUGS (1)
  1. ETANERCEPT [Suspect]
     Active Substance: ETANERCEPT
     Indication: RHEUMATOID ARTHRITIS
     Dosage: 50 MG, UNK
     Route: 058
     Dates: start: 20080528, end: 20090615

REACTIONS (5)
  - Dementia [Fatal]
  - Asthenia [Fatal]
  - Aortic stenosis [Fatal]
  - Pneumonia [Fatal]
  - Delirium [Fatal]
